FAERS Safety Report 7386611-2 (Version None)
Quarter: 2011Q1

REPORT INFORMATION
  Report Type: 
  Country: None (occurrence: None)
  Receive Date: 20110323
  Receipt Date: 20110307
  Transmission Date: 20110831
  Serious: Yes (Other)
  Sender: FDA-Public Use
  Company Number: 2011MA002363

PATIENT
  Age: 61 Year

DRUGS (10)
  1. INSAPAMIDE [Concomitant]
  2. SIMVASTATIN [Concomitant]
  3. BISOPROLOL [Concomitant]
  4. SOTALOL [Concomitant]
  5. TILDIEM LA (NO PREF. NAME) [Suspect]
     Dosage: PO
     Route: 048
     Dates: start: 20101006, end: 20101104
  6. DILTIAZEM HCL [Suspect]
     Dosage: PO
     Route: 048
     Dates: start: 20110106
  7. MEBEVERINE [Concomitant]
  8. RAMIPRIL [Concomitant]
  9. LOSARTAN [Concomitant]
  10. BENDROFLUMETHIAZIDE [Concomitant]

REACTIONS (9)
  - MIGRAINE [None]
  - NAUSEA [None]
  - CEREBROVASCULAR ACCIDENT [None]
  - DRUG HYPERSENSITIVITY [None]
  - DIZZINESS [None]
  - VERTIGO [None]
  - VISUAL IMPAIRMENT [None]
  - VISION BLURRED [None]
  - HAEMATOMA [None]
